FAERS Safety Report 24137236 (Version 1)
Quarter: 2024Q3

REPORT INFORMATION
  Report Type: Spontaneous
  Country: US (occurrence: None)
  Receive Date: 20240725
  Receipt Date: 20240725
  Transmission Date: 20241017
  Serious: Yes (Hospitalization)
  Sender: Public
  Company Number: None

PATIENT
  Sex: Female

DRUGS (7)
  1. PERTZYE [Suspect]
     Active Substance: PANCRELIPASE AMYLASE\PANCRELIPASE LIPASE\PANCRELIPASE PROTEASE
     Indication: Cystic fibrosis
     Dosage: FREQ: TAKE 3 CAPSULES BY MOUTH WITH MEALS AND TAKE 1 TO 2 CAPSULES BY MOUTH WITH SNACKS (MAX: 15 CA
     Route: 048
     Dates: start: 20240702
  2. B-COMPLEX/C [Concomitant]
  3. CREON [Concomitant]
     Active Substance: PANCRELIPASE AMYLASE\PANCRELIPASE LIPASE\PANCRELIPASE PROTEASE
  4. KP VITAMIN D [Concomitant]
  5. MAGNESIUM [Concomitant]
     Active Substance: MAGNESIUM
  6. PROMETHAZINE [Concomitant]
  7. VITAMIN C [Concomitant]
     Active Substance: ASCORBIC ACID

REACTIONS (4)
  - Pancreatitis [None]
  - Constipation [None]
  - Abdominal pain upper [None]
  - Product dose omission issue [None]
